FAERS Safety Report 7190737 (Version 5)
Quarter: 2013Q1

REPORT INFORMATION
  Report Type: Report from Study
  Country: JP (occurrence: JP)
  Receive Date: 20091126
  Receipt Date: 20130214
  Transmission Date: 20140127
  Serious: Yes (Hospitalization, Disabling, Other)
  Sender: FDA-Public Use
  Company Number: JP-BRISTOL-MYERS SQUIBB COMPANY-14869341

PATIENT
  Age: 56 Year
  Sex: Male
  Weight: 55 kg

DRUGS (3)
  1. ERBITUX SOLN FOR INF 5MG/ML [Suspect]
     Indication: RECTAL CANCER
     Dosage: 400MG:16JUL2009:2ND INF?20AUG09:6TH INF?17SEP09:9TH INF?INTERRUPTED ON 12NOV2009?19NOV09-CONT
     Route: 041
     Dates: start: 20090709, end: 20090709
  2. POLARAMINE [Concomitant]
     Indication: PREMEDICATION
     Route: 041
     Dates: start: 20090709
  3. BAYASPIRIN [Concomitant]
     Indication: THROMBOSIS PROPHYLAXIS
     Route: 048
     Dates: start: 20090723

REACTIONS (9)
  - Deep vein thrombosis [Recovered/Resolved with Sequelae]
  - White blood cell count decreased [Recovered/Resolved]
  - Hepatic function abnormal [Recovering/Resolving]
  - Hyperkalaemia [Recovered/Resolved]
  - Infusion related reaction [Recovered/Resolved]
  - Stomatitis [Recovered/Resolved with Sequelae]
  - Acne [Unknown]
  - Paronychia [Not Recovered/Not Resolved]
  - Dry skin [Not Recovered/Not Resolved]
